FAERS Safety Report 20939784 (Version 1)
Quarter: 2022Q2

REPORT INFORMATION
  Report Type: Spontaneous
  Country: US (occurrence: US)
  Receive Date: 20220609
  Receipt Date: 20220609
  Transmission Date: 20220721
  Serious: No
  Sender: FDA-Public Use
  Company Number: US-BRISTOL-MYERS SQUIBB COMPANY-2022-048803

PATIENT
  Age: 61 Year
  Sex: Female

DRUGS (1)
  1. REVLIMID [Suspect]
     Active Substance: LENALIDOMIDE
     Indication: Plasma cell myeloma
     Dosage: FREQUENCY: DAYS 1-21 OF EACH CHEMOTHERAPY CYCLE (28 DAYS)
     Route: 048
     Dates: start: 20200327

REACTIONS (3)
  - Skin disorder [Unknown]
  - Product delivery mechanism issue [Unknown]
  - Rash [Unknown]
